FAERS Safety Report 6021484-1 (Version None)
Quarter: 2008Q4

REPORT INFORMATION
  Report Type: 
  Country: None (occurrence: None)
  Receive Date: 20081229
  Receipt Date: 20081217
  Transmission Date: 20090506
  Serious: Yes (Other)
  Sender: FDA-Public Use
  Company Number: CA-PFIZER INC-2008158500

PATIENT

DRUGS (6)
  1. CELEBREX [Suspect]
     Dosage: 200 MG, UNK
  2. LYRICA [Suspect]
     Indication: INTERVERTEBRAL DISC PROTRUSION
     Dosage: 75 MG, 2X/DAY
     Route: 048
     Dates: start: 20080101
  3. LYRICA [Suspect]
     Indication: PAIN IN EXTREMITY
  4. LYRICA [Suspect]
     Indication: SCIATICA
  5. DOCUSATE SODIUM [Concomitant]
     Dosage: UNK
  6. PREVACID [Concomitant]
     Dosage: UNK

REACTIONS (3)
  - DRUG INEFFECTIVE [None]
  - DRY MOUTH [None]
  - ULCER [None]
